FAERS Safety Report 23657397 (Version 1)
Quarter: 2024Q1

REPORT INFORMATION
  Report Type: Spontaneous
  Country: CA (occurrence: CA)
  Receive Date: 20240321
  Receipt Date: 20240321
  Transmission Date: 20240409
  Serious: Yes (Other)
  Sender: FDA-Public Use
  Company Number: CA-PFIZER INC-202300202384

PATIENT
  Age: 14 Year
  Sex: Male

DRUGS (8)
  1. SOMATROPIN [Suspect]
     Active Substance: SOMATROPIN
     Indication: Short stature
     Dosage: 1 DF, 6 TIMES WEEKLY 1.2MG
     Route: 058
     Dates: start: 20170921, end: 201712
  2. SOMATROPIN [Suspect]
     Active Substance: SOMATROPIN
     Dosage: 1 DF, DAILY 1.6MG, DISCONTINUED
     Route: 058
     Dates: start: 201712
  3. SOMATROPIN [Suspect]
     Active Substance: SOMATROPIN
     Dosage: 2 MG, 6 TIMES WEEKLY DISCONTINUED - MINIQUICK
     Route: 058
  4. SOMATROPIN [Suspect]
     Active Substance: SOMATROPIN
     Dosage: 2550 UG, 6 TIMES WEEKLY 12MG GOQUICK PEN
     Route: 058
  5. HELIXIA COUGH [Concomitant]
     Dosage: UNK
  6. MULTIVITAMIN [ASCORBIC ACID;CALCIUM CARBONATE;CYANOCOBALAMIN;NICOTINAM [Concomitant]
     Dosage: 1 DF, DAILY 1 TAB
     Route: 048
  7. MULTIVITAMIN [ASCORBIC ACID;CALCIUM CARBONATE;CYANOCOBALAMIN;NICOTINAM [Concomitant]
     Dosage: 1 DF, 1X/DAY 1 TAB
     Route: 048
  8. FISH OIL\OMEGA-3 FATTY ACIDS [Concomitant]
     Active Substance: FISH OIL\OMEGA-3 FATTY ACIDS
     Dosage: UNK

REACTIONS (8)
  - Ulna fracture [Unknown]
  - Wrist fracture [Unknown]
  - Knee deformity [Unknown]
  - Haematocrit decreased [Unknown]
  - Haemoglobin decreased [Unknown]
  - Insulin-like growth factor increased [Unknown]
  - Urine analysis abnormal [Unknown]
  - Product prescribing error [Unknown]
